FAERS Safety Report 21918959 (Version 3)
Quarter: 2023Q2

REPORT INFORMATION
  Report Type: Spontaneous
  Country: US (occurrence: US)
  Receive Date: 20230127
  Receipt Date: 20230613
  Transmission Date: 20230722
  Serious: No
  Sender: FDA-Public Use
  Company Number: US-BRISTOL-MYERS SQUIBB COMPANY-2023-012193

PATIENT
  Age: 82 Year
  Sex: Male
  Weight: 97.52 kg

DRUGS (2)
  1. REVLIMID [Suspect]
     Active Substance: LENALIDOMIDE
     Indication: Mantle cell lymphoma
     Dosage: FREQUENCY: 2W, 1W OFF
     Route: 048
     Dates: start: 20210430
  2. REVLIMID [Suspect]
     Active Substance: LENALIDOMIDE
     Dosage: QD 14D ON 14D OFF
     Route: 048

REACTIONS (8)
  - Constipation [Unknown]
  - Weight increased [Unknown]
  - Off label use [Unknown]
  - Illness [Unknown]
  - White blood cell count decreased [Unknown]
  - Influenza like illness [Unknown]
  - Dizziness [Unknown]
  - Head discomfort [Unknown]
